FAERS Safety Report 17161837 (Version 1)
Quarter: 2019Q4

REPORT INFORMATION
  Report Type: Spontaneous
  Country: TR (occurrence: TR)
  Receive Date: 20191217
  Receipt Date: 20191217
  Transmission Date: 20200122
  Serious: Yes (Other)
  Sender: FDA-Public Use
  Company Number: TR-AMGEN-TURSP2019206809

PATIENT
  Age: 13 Year
  Sex: Female

DRUGS (5)
  1. ATG [ANTITHYMOCYTE IMMUNOGLOBULIN] [Concomitant]
     Active Substance: LAPINE T-LYMPHOCYTE IMMUNE GLOBULIN
     Indication: APLASTIC ANAEMIA
  2. CYCLOSPORINE. [Suspect]
     Active Substance: CYCLOSPORINE
     Indication: APLASTIC ANAEMIA
     Dosage: UNK
     Route: 065
  3. DANAZOL. [Concomitant]
     Active Substance: DANAZOL
     Indication: APLASTIC ANAEMIA
  4. PREDNISOLONE. [Suspect]
     Active Substance: PREDNISOLONE
     Indication: APLASTIC ANAEMIA
     Dosage: UNK
     Route: 065
  5. FILGRASTIM [Suspect]
     Active Substance: FILGRASTIM
     Indication: APLASTIC ANAEMIA
     Route: 065

REACTIONS (4)
  - Vasogenic cerebral oedema [Unknown]
  - Posterior reversible encephalopathy syndrome [Unknown]
  - Off label use [Unknown]
  - Cerebral haemorrhage [Unknown]
